FAERS Safety Report 7215656-8 (Version None)
Quarter: 2011Q1

REPORT INFORMATION
  Report Type: 
  Country: None (occurrence: None)
  Receive Date: 20110105
  Receipt Date: 20110105
  Transmission Date: 20110831
  Serious: Yes (Life-Threatening, Hospitalization)
  Sender: FDA-Public Use
  Company Number: None

PATIENT
  Age: 83 Year
  Sex: Male
  Weight: 61 kg

DRUGS (1)
  1. HYDROMORPHONE HCL [Suspect]
     Indication: HUMERUS FRACTURE
     Dosage: 0.5 MG ONCE IV
     Route: 042
     Dates: start: 20101109, end: 20101109

REACTIONS (8)
  - MIOSIS [None]
  - RESPIRATORY DEPRESSION [None]
  - CONFUSIONAL STATE [None]
  - HYPOTENSION [None]
  - HYPERCAPNIA [None]
  - HYPOXIA [None]
  - SEDATION [None]
  - OVERDOSE [None]
